FAERS Safety Report 6774333-8 (Version None)
Quarter: 2010Q2

REPORT INFORMATION
  Report Type: 
  Country: None (occurrence: None)
  Receive Date: 20100617
  Receipt Date: 20100607
  Transmission Date: 20101027
  Serious: Yes (Hospitalization, Disabling)
  Sender: FDA-Public Use
  Company Number: JP-JNJFOC-20100604276

PATIENT
  Sex: Male
  Weight: 54 kg

DRUGS (11)
  1. LOPEMIN [Suspect]
     Indication: DIARRHOEA
     Route: 048
  2. CAMPTOSAR [Suspect]
     Indication: COLON CANCER
     Route: 041
  3. FLUOROURACIL [Suspect]
     Indication: COLON CANCER
     Route: 040
  4. CALCIUM LEVOFOLINATE [Suspect]
     Indication: DRUG USE FOR UNKNOWN INDICATION
  5. KYTRIL [Concomitant]
  6. DECADRON [Concomitant]
  7. DECADRON [Concomitant]
  8. ADALAT [Concomitant]
  9. FAMOTIDINE [Concomitant]
  10. MAGNESIUM OXIDE [Concomitant]
  11. ZOFRAN [Concomitant]

REACTIONS (10)
  - C-REACTIVE PROTEIN INCREASED [None]
  - DIARRHOEA [None]
  - DISSEMINATED INTRAVASCULAR COAGULATION [None]
  - GASTROINTESTINAL NECROSIS [None]
  - HAEMATOCHEZIA [None]
  - INTESTINAL PERFORATION [None]
  - LEUKOPENIA [None]
  - MELAENA [None]
  - NEUTROPENIA [None]
  - PNEUMATOSIS INTESTINALIS [None]
